FAERS Safety Report 24169718 (Version 6)
Quarter: 2024Q4

REPORT INFORMATION
  Report Type: Report from Study
  Country: AT (occurrence: AT)
  Receive Date: 20240803
  Receipt Date: 20241019
  Transmission Date: 20250114
  Serious: Yes (Death, Hospitalization)
  Sender: ABBVIE
  Company Number: AT-ABBVIE-4716202

PATIENT
  Age: 71 Year
  Sex: Male
  Weight: 67 kg

DRUGS (47)
  1. VENETOCLAX [Suspect]
     Active Substance: VENETOCLAX
     Indication: Acute myeloid leukaemia
     Dosage: FREQUENCY : DOSE ESCALATION
     Route: 048
     Dates: start: 20230211, end: 20230211
  2. VENETOCLAX [Suspect]
     Active Substance: VENETOCLAX
     Indication: Acute myeloid leukaemia
     Dosage: FREQUENCY: DOSE ESCALATION
     Route: 048
     Dates: start: 20230209, end: 20230209
  3. VENETOCLAX [Suspect]
     Active Substance: VENETOCLAX
     Indication: Acute myeloid leukaemia
     Route: 048
     Dates: start: 20230309, end: 20230405
  4. VENETOCLAX [Suspect]
     Active Substance: VENETOCLAX
     Indication: Acute myeloid leukaemia
     Dosage: FREQUENCY: DOSE ESCALATION
     Route: 048
     Dates: start: 20230210, end: 20230210
  5. VENETOCLAX [Suspect]
     Active Substance: VENETOCLAX
     Indication: Acute myeloid leukaemia
     Route: 048
     Dates: start: 20230411, end: 20230508
  6. VENETOCLAX [Suspect]
     Active Substance: VENETOCLAX
     Indication: Acute myeloid leukaemia
     Dosage: STANDARD DOSING. NON HEMATOLOGIC AE / SAE
     Route: 048
     Dates: start: 20230515, end: 20230523
  7. VENETOCLAX [Suspect]
     Active Substance: VENETOCLAX
     Indication: Acute myeloid leukaemia
     Dosage: NON HEMATOLOGIC AE / SAE
     Route: 048
     Dates: start: 20230626, end: 20230723
  8. VENETOCLAX [Suspect]
     Active Substance: VENETOCLAX
     Indication: Acute myeloid leukaemia
     Dosage: FREQUENCY TEXT: STANDARD DOSE. NON HEMATOLOGIC AE / SAE
     Route: 048
     Dates: start: 20230724, end: 20230728
  9. VENETOCLAX [Suspect]
     Active Substance: VENETOCLAX
     Indication: Acute myeloid leukaemia
     Dosage: FREQUENCY : MAINTENANCE DOSE
     Route: 048
     Dates: start: 20230212, end: 20230308
  10. VENETOCLAX [Suspect]
     Active Substance: VENETOCLAX
     Indication: Acute myeloid leukaemia
     Dosage: 0 MG
     Route: 048
     Dates: start: 20230406, end: 20230410
  11. VENETOCLAX [Suspect]
     Active Substance: VENETOCLAX
     Indication: Acute myeloid leukaemia
     Dosage: 0 MG
     Route: 048
     Dates: start: 20230509, end: 20230514
  12. VENETOCLAX [Suspect]
     Active Substance: VENETOCLAX
     Indication: Acute myeloid leukaemia
     Dosage: 0 MG
     Route: 048
     Dates: start: 20230524, end: 20230625
  13. MYCOSTATIN [Concomitant]
     Active Substance: NYSTATIN
     Indication: Oral fungal infection
     Route: 048
     Dates: start: 20230202, end: 20230220
  14. MYCOSTATIN [Concomitant]
     Active Substance: NYSTATIN
     Indication: Oral fungal infection
     Dosage: 4X2ML
     Route: 048
     Dates: start: 20240322, end: 20240323
  15. PERFALGAN [Concomitant]
     Active Substance: ACETAMINOPHEN
     Indication: Product used for unknown indication
     Dosage: TIME INTERVAL: AS NECESSARY
     Route: 042
     Dates: start: 20230207, end: 20230207
  16. EXCIPIAL U10 LIPOLOTION [Concomitant]
     Indication: Product used for unknown indication
  17. DIPHENHYDRAMINE HYDROCHLORIDE [Concomitant]
     Active Substance: DIPHENHYDRAMINE HYDROCHLORIDE
     Indication: Antiallergic therapy
     Dosage: ONE AMPOULE
     Route: 042
     Dates: start: 20240324, end: 20240325
  18. BENZYL PENICILLIN [Concomitant]
     Indication: Syphilis
     Route: 042
     Dates: start: 20230208, end: 20230222
  19. Gengigel [Concomitant]
     Indication: Product used for unknown indication
     Route: 048
     Dates: start: 20230202, end: 20230220
  20. COLDISTOP [Concomitant]
     Indication: Product used for unknown indication
     Dosage: NOSE OIL
     Route: 062
     Dates: start: 20230202, end: 20230220
  21. METHYLPREDNISOLONE [Concomitant]
     Active Substance: METHYLPREDNISOLONE
     Indication: Product used for unknown indication
     Route: 048
     Dates: start: 20230108, end: 20230222
  22. HALCION [Concomitant]
     Active Substance: TRIAZOLAM
     Indication: Product used for unknown indication
     Dosage: TIME INTERVAL: AS NECESSARY
     Route: 048
     Dates: start: 20230202, end: 20230220
  23. ENALAPRIL [Concomitant]
     Active Substance: ENALAPRIL
     Indication: Product used for unknown indication
     Dosage: FREQUENCY: 1-0-0.5-0
     Route: 048
  24. ENALAPRIL [Concomitant]
     Active Substance: ENALAPRIL
     Indication: Product used for unknown indication
  25. ACETAMINOPHEN [Concomitant]
     Active Substance: ACETAMINOPHEN
     Indication: Pain
     Dosage: FREQUENCY: 1-1-1
     Route: 048
     Dates: start: 20230208, end: 20230222
  26. ACETAMINOPHEN [Concomitant]
     Active Substance: ACETAMINOPHEN
     Indication: Pain
     Route: 048
  27. CHLORHEXIDINE GLUCONATE [Concomitant]
     Active Substance: CHLORHEXIDINE GLUCONATE
     Indication: Product used for unknown indication
     Route: 048
     Dates: start: 20230202, end: 20230220
  28. OCTENIDOL [Concomitant]
     Indication: Product used for unknown indication
     Route: 048
     Dates: start: 20230202, end: 20230220
  29. CEFPIROME SULFATE [Concomitant]
     Active Substance: CEFPIROME SULFATE
     Indication: Product used for unknown indication
     Route: 048
     Dates: start: 20230207, end: 20230216
  30. AZACITIDINE [Concomitant]
     Active Substance: AZACITIDINE
     Indication: Product used for unknown indication
     Dosage: FREQUENCY: STANDARD DOSE
     Dates: start: 20230209, end: 20230210
  31. AZACITIDINE [Concomitant]
     Active Substance: AZACITIDINE
     Indication: Product used for unknown indication
     Dates: start: 20230313, end: 20230317
  32. AZACITIDINE [Concomitant]
     Active Substance: AZACITIDINE
     Indication: Product used for unknown indication
     Dates: start: 20230213, end: 20230217
  33. AZACITIDINE [Concomitant]
     Active Substance: AZACITIDINE
     Indication: Product used for unknown indication
     Dates: start: 20230309, end: 20230310
  34. AZACITIDINE [Concomitant]
     Active Substance: AZACITIDINE
     Indication: Product used for unknown indication
     Dates: start: 20230411, end: 20230414
  35. AZACITIDINE [Concomitant]
     Active Substance: AZACITIDINE
     Indication: Product used for unknown indication
     Dates: start: 20230515, end: 20230518
  36. AZACITIDINE [Concomitant]
     Active Substance: AZACITIDINE
     Indication: Product used for unknown indication
     Dates: start: 20230626, end: 20230630
  37. AZACITIDINE [Concomitant]
     Active Substance: AZACITIDINE
     Indication: Product used for unknown indication
     Dosage: FREQUENCY TEXT: STANDARD DOSE
     Dates: start: 20230724, end: 20230728
  38. DEXIBUPROFEN [Concomitant]
     Active Substance: DEXIBUPROFEN
     Indication: Pain
     Dosage: TIME INTERVAL: AS NECESSARY
     Route: 048
     Dates: start: 20230206
  39. DEXIBUPROFEN [Concomitant]
     Active Substance: DEXIBUPROFEN
     Indication: Pain
     Dosage: TIME INTERVAL: AS NECESSARY
  40. ERYTHROPOIETIN [Concomitant]
     Active Substance: ERYTHROPOIETIN
     Indication: Product used for unknown indication
     Route: 058
     Dates: start: 20230313
  41. GLYCOSAMINOGLYCANS [Concomitant]
     Active Substance: GLYCOSAMINOGLYCANS
     Indication: Product used for unknown indication
     Route: 003
     Dates: start: 20230208, end: 20230220
  42. ACETAMINOPHEN [Concomitant]
     Active Substance: ACETAMINOPHEN
     Indication: Product used for unknown indication
     Dosage: TIME INTERVAL: 0.33333333 DAYS
     Route: 048
     Dates: start: 20230203
  43. PANTOPRAZOLE SODIUM [Concomitant]
     Active Substance: PANTOPRAZOLE SODIUM
     Indication: Gastrointestinal disorder prophylaxis
     Dosage: FREQUENCY-1-0-0-0
     Route: 048
     Dates: start: 20230202
  44. PANTOPRAZOLE SODIUM [Concomitant]
     Active Substance: PANTOPRAZOLE SODIUM
     Indication: Gastrointestinal disorder prophylaxis
     Dosage: FREQUENCY: 1-0-0
     Route: 048
     Dates: start: 20240322, end: 20240325
  45. Novalgin [Concomitant]
     Indication: Pain
     Route: 048
     Dates: start: 20240322, end: 20240325
  46. ELOMEL [Concomitant]
     Indication: Electrolyte substitution therapy
     Route: 042
     Dates: start: 20240323, end: 20240324
  47. ELOMEL [Concomitant]
     Indication: Electrolyte substitution therapy
     Route: 042
     Dates: start: 20240322, end: 20240323

REACTIONS (29)
  - Cardiac arrest [Fatal]
  - Petechiae [Not Recovered/Not Resolved]
  - Petechiae [Recovered/Resolved]
  - Thrombocytopenia [Recovered/Resolved]
  - Epistaxis [Recovered/Resolved]
  - Epistaxis [Not Recovered/Not Resolved]
  - Petechiae [Recovered/Resolved]
  - Petechiae [Not Recovered/Not Resolved]
  - Chills [Unknown]
  - Thrombocytopenia [Recovered/Resolved]
  - Pallor [Unknown]
  - Laboratory test abnormal [Unknown]
  - Tumour lysis syndrome [Fatal]
  - General physical health deterioration [Fatal]
  - Melaena [Unknown]
  - Pyrexia [Unknown]
  - Infection [Fatal]
  - Acute kidney injury [Fatal]
  - Skin haemorrhage [Unknown]
  - Oral blood blister [Unknown]
  - Thrombocytopenia [Recovered/Resolved]
  - Dyspnoea [Unknown]
  - Acute myeloid leukaemia [Fatal]
  - Neoplasm progression [Fatal]
  - Respiratory failure [Fatal]
  - Multiple organ dysfunction syndrome [Fatal]
  - Leukopenia [Recovered/Resolved]
  - Blood calcium decreased [Unknown]
  - White blood cell count increased [Not Recovered/Not Resolved]

NARRATIVE: CASE EVENT DATE: 20230219
